FAERS Safety Report 8924208 (Version 1)
Quarter: 2012Q4

REPORT INFORMATION
  Report Type: 
  Country: US (occurrence: US)
  Receive Date: 20121126
  Receipt Date: 20121126
  Transmission Date: 20130627
  Serious: Yes (Death)
  Sender: FDA-Public Use
  Company Number: US-GLAXOSMITHKLINE-A1002505A

PATIENT
  Sex: Male

DRUGS (2)
  1. PAROXETINE [Suspect]
     Indication: PANIC DISORDER
     Dosage: 80MG Per day
     Route: 048
  2. UNSPECIFIED MEDICATIONS [Concomitant]

REACTIONS (6)
  - Death [Fatal]
  - Toxicity to various agents [Fatal]
  - Irritability [Unknown]
  - Balance disorder [Unknown]
  - Respiration abnormal [Unknown]
  - Cyanosis [Unknown]
